FAERS Safety Report 24145126 (Version 1)
Quarter: 2024Q3

REPORT INFORMATION
  Report Type: Report from Study
  Country: US (occurrence: US)
  Receive Date: 20240729
  Receipt Date: 20240729
  Transmission Date: 20241016
  Serious: No
  Sender: ACADIA PHARMACEUTICALS
  Company Number: US-ACADIA PHARMACEUTICALS INC.-ACA-2024-PIM-003341

PATIENT
  Sex: Female

DRUGS (8)
  1. NUPLAZID [Suspect]
     Active Substance: PIMAVANSERIN TARTRATE
     Indication: Parkinson^s disease
     Dosage: 34 MILLIGRAM, QD
     Route: 048
     Dates: start: 20240124
  2. ASPIRIN [Concomitant]
     Active Substance: ASPIRIN
     Dosage: 81 MILLIGRAM
  3. BUSPIRONE [Concomitant]
     Active Substance: BUSPIRONE HYDROCHLORIDE
     Dosage: 10 MILLIGRAM
  4. CALCIUM [Concomitant]
     Active Substance: CALCIUM
     Dosage: 500/D
  5. GABAPENTIN [Concomitant]
     Active Substance: GABAPENTIN
     Dosage: 100 MILLIGRAM
  6. GOCOVRI [Concomitant]
     Active Substance: AMANTADINE
     Dosage: 137 MILLIGRAM
  7. RYTARY [Concomitant]
     Active Substance: CARBIDOPA\LEVODOPA
     Dosage: 145 MILLIGRAM
  8. TOLTERODINE [Concomitant]
     Active Substance: TOLTERODINE
     Dosage: 2 MILLIGRAM

REACTIONS (6)
  - Dizziness postural [Unknown]
  - Dry mouth [Unknown]
  - Fatigue [Unknown]
  - Abdominal discomfort [Not Recovered/Not Resolved]
  - Oedema peripheral [Unknown]
  - Constipation [Not Recovered/Not Resolved]
